FAERS Safety Report 19006208 (Version 10)
Quarter: 2022Q2

REPORT INFORMATION
  Report Type: Report from Study
  Country: PT (occurrence: PT)
  Receive Date: 20210315
  Receipt Date: 20220614
  Transmission Date: 20220721
  Serious: Yes (Other)
  Sender: FDA-Public Use
  Company Number: PT-ABBVIE-21K-130-3813690-00

PATIENT
  Sex: Female

DRUGS (10)
  1. CARBIDOPA\LEVODOPA [Suspect]
     Active Substance: CARBIDOPA\LEVODOPA
     Indication: Parkinson^s disease
     Dosage: 20 MG + 5 MG?MORN:6CC;MAINT:2.5CC/H;EXTRA:1CC
     Route: 050
     Dates: start: 20201029
  2. CARBIDOPA\LEVODOPA [Suspect]
     Active Substance: CARBIDOPA\LEVODOPA
     Dosage: 20 MG PLUS 5 MG?MORN:10CC;MAINT:3.7CC/H;EXTRA:1.5CC
     Route: 050
     Dates: start: 20210308, end: 2021
  3. CARBIDOPA\LEVODOPA [Suspect]
     Active Substance: CARBIDOPA\LEVODOPA
     Route: 050
     Dates: start: 20210921
  4. CARBIDOPA\LEVODOPA [Suspect]
     Active Substance: CARBIDOPA\LEVODOPA
     Dosage: 20 MG PLUS 5 MG?MORN:10CC;MAINTE:3.9CC/H;EXTRA:1,5CC
     Route: 050
     Dates: end: 20220310
  5. CARBIDOPA\LEVODOPA [Suspect]
     Active Substance: CARBIDOPA\LEVODOPA
     Dosage: 20 MG PLUS 5 MG?MORN:10CC;MAINT:4.2CC/H;EXTRA:2CC
     Route: 050
     Dates: start: 20220310, end: 20220326
  6. CARBIDOPA\LEVODOPA [Suspect]
     Active Substance: CARBIDOPA\LEVODOPA
     Dosage: 20 MG PLUS 5 MG?MORN:12CC;MAINT:4.5CC/H;EXTRA:2,5CC
     Route: 050
     Dates: start: 20220326
  7. ESCITALOPRAM [Concomitant]
     Active Substance: ESCITALOPRAM OXALATE
     Indication: Product used for unknown indication
  8. DOMPERIDONE [Concomitant]
     Active Substance: DOMPERIDONE
     Indication: Product used for unknown indication
  9. CLOZAPINE [Concomitant]
     Active Substance: CLOZAPINE
     Indication: Product used for unknown indication
  10. RIVOTRIL [Concomitant]
     Active Substance: CLONAZEPAM
     Indication: Product used for unknown indication

REACTIONS (3)
  - Weight decreased [Recovered/Resolved]
  - Decreased appetite [Not Recovered/Not Resolved]
  - Dyskinesia [Recovering/Resolving]

NARRATIVE: CASE EVENT DATE: 20201201
